FAERS Safety Report 4648423-X (Version None)
Quarter: 2005Q2

REPORT INFORMATION
  Report Type: 
  Country: None (occurrence: None)
  Receive Date: 20050427
  Receipt Date: 20050408
  Transmission Date: 20051028
  Serious: Yes (Hospitalization, Disabling)
  Sender: FDA-Public Use
  Company Number: FR_050105645

PATIENT
  Age: 48 Year
  Sex: Male
  Weight: 44 kg

DRUGS (6)
  1. GEMZAR [Suspect]
     Indication: NON-SMALL CELL LUNG CANCER
     Dosage: 1250 MG/M2/2 OTHER
     Dates: start: 20040810, end: 20041201
  2. CISPLATIN [Concomitant]
  3. RADIATION THERAPY [Concomitant]
  4. MORPHINE SULFATE [Concomitant]
  5. PREDNISOLONE [Concomitant]
  6. LANSOPRAZOLE [Concomitant]

REACTIONS (4)
  - HEPATIC ATROPHY [None]
  - HEPATIC FIBROSIS [None]
  - HEPATIC SIDEROSIS [None]
  - RADIATION INJURY [None]
